FAERS Safety Report 23442561 (Version 2)
Quarter: 2024Q1

REPORT INFORMATION
  Report Type: Spontaneous
  Country: DE (occurrence: DE)
  Receive Date: 20240125
  Receipt Date: 20240312
  Transmission Date: 20240409
  Serious: Yes (Other)
  Sender: FDA-Public Use
  Company Number: DE-SANOFI-01905144

PATIENT
  Age: 55 Year
  Sex: Female

DRUGS (1)
  1. AUBAGIO [Suspect]
     Active Substance: TERIFLUNOMIDE
     Indication: Multiple sclerosis
     Dosage: UNK
     Dates: start: 20240104

REACTIONS (23)
  - Hallucination, olfactory [Unknown]
  - Condition aggravated [Unknown]
  - Altered state of consciousness [Unknown]
  - Depression [Unknown]
  - Discomfort [Unknown]
  - Skin irritation [Unknown]
  - Vaginal discharge [Unknown]
  - Blister [Unknown]
  - Erythema [Unknown]
  - Skin exfoliation [Unknown]
  - Pruritus [Unknown]
  - Rash macular [Unknown]
  - Blood urine present [Unknown]
  - Dry skin [Unknown]
  - Fatigue [Unknown]
  - Asthenia [Unknown]
  - Hypertension [Unknown]
  - Diarrhoea [Unknown]
  - Liver function test increased [Unknown]
  - Headache [Unknown]
  - Hypertension [Unknown]
  - Urinary tract infection [Unknown]
  - Transaminases increased [Unknown]

NARRATIVE: CASE EVENT DATE: 20240101
